FAERS Safety Report 9320673 (Version 3)
Quarter: 2013Q2

REPORT INFORMATION
  Report Type: Spontaneous
  Country: AU (occurrence: AU)
  Receive Date: 20130531
  Receipt Date: 20130620
  Transmission Date: 20140414
  Serious: Yes (Other)
  Sender: FDA-Public Use
  Company Number: AU-RANBAXY-2013RR-69674

PATIENT
  Age: 40 Year
  Sex: Female

DRUGS (1)
  1. NORTRIPTYLINE [Suspect]
     Indication: DEPRESSION
     Dosage: 10 MG, QID
     Route: 065

REACTIONS (7)
  - Psychotic disorder [Recovered/Resolved]
  - Abnormal behaviour [Recovered/Resolved]
  - Hallucination, auditory [Recovered/Resolved]
  - Disorientation [Recovered/Resolved]
  - Dizziness [Recovered/Resolved]
  - Delusion [Recovered/Resolved]
  - Amnesia [Recovered/Resolved]
